FAERS Safety Report 4562879-2 (Version None)
Quarter: 2005Q1

REPORT INFORMATION
  Report Type: 
  Country: None (occurrence: None)
  Receive Date: 20050121
  Receipt Date: 20041215
  Transmission Date: 20050727
  Serious: Yes (Other)
  Sender: FDA-Public Use
  Company Number: 200510079GDS

PATIENT
  Age: 79 Year
  Sex: Female

DRUGS (5)
  1. NIFEDIPINE [Suspect]
  2. MICARDIS [Suspect]
     Indication: HYPERTENSION
     Dosage: 80 MG, TOTAL DAILY, ORAL
     Route: 048
     Dates: start: 20040801, end: 20040101
  3. MICARDIS [Suspect]
     Indication: HYPERTENSION
     Dosage: 80 MG, TOTAL DAILY, ORAL
     Route: 048
     Dates: start: 20041101
  4. ULTRACET [Concomitant]
  5. DICLOFENAC [Concomitant]

REACTIONS (3)
  - DRUG INEFFECTIVE [None]
  - HEADACHE [None]
  - HYPERTENSION [None]
